FAERS Safety Report 7197012-4 (Version None)
Quarter: 2010Q4

REPORT INFORMATION
  Report Type: 
  Country: None (occurrence: None)
  Receive Date: 20101224
  Receipt Date: 20101220
  Transmission Date: 20110411
  Serious: Yes (Other)
  Sender: FDA-Public Use
  Company Number: US-ELI_LILLY_AND_COMPANY-US201012004809

PATIENT
  Sex: Female

DRUGS (3)
  1. HUMALOG [Suspect]
     Indication: TYPE 2 DIABETES MELLITUS
     Dosage: 14 U, 3/D
  2. HUMALOG [Suspect]
     Dosage: UNK, OTHER
  3. LANTUS [Concomitant]

REACTIONS (4)
  - CARDIAC FAILURE CONGESTIVE [None]
  - LUNG NEOPLASM MALIGNANT [None]
  - RENAL IMPAIRMENT [None]
  - VISUAL ACUITY REDUCED [None]
